FAERS Safety Report 4511934-1 (Version None)
Quarter: 2004Q4

REPORT INFORMATION
  Report Type: 
  Country: None (occurrence: None)
  Receive Date: 20041123
  Receipt Date: 20041110
  Transmission Date: 20050328
  Serious: No
  Sender: FDA-Public Use
  Company Number: 2004UW18855

PATIENT
  Age: 57 Year
  Sex: Female
  Weight: 61.2356 kg

DRUGS (4)
  1. ARIMIDEX [Suspect]
     Indication: BREAST CANCER
     Dosage: 1 MG PO
     Route: 048
     Dates: start: 20030101
  2. BEXTRA [Concomitant]
  3. PROTONIX [Concomitant]
  4. DARVOCET-N 100 [Concomitant]

REACTIONS (1)
  - PNEUMOCYSTIS CARINII PNEUMONIA [None]
